FAERS Safety Report 23347091 (Version 1)
Quarter: 2023Q4

REPORT INFORMATION
  Report Type: Report from Study
  Country: US (occurrence: US)
  Receive Date: 20231228
  Receipt Date: 20231228
  Transmission Date: 20240110
  Serious: Yes (Death)
  Sender: FDA-Public Use
  Company Number: US-BAYER-2023A185741

PATIENT
  Age: 50 Year
  Sex: Male
  Weight: 86.168 kg

DRUGS (13)
  1. ADEMPAS [Suspect]
     Active Substance: RIOCIGUAT
     Indication: Pulmonary arterial hypertension
     Dosage: UNK
     Dates: start: 20190906
  2. ADEMPAS [Suspect]
     Active Substance: RIOCIGUAT
     Indication: Pulmonary arterial hypertension
     Dosage: 2.5 MG, TID
     Route: 048
  3. BREO ELLIPTA [Concomitant]
     Active Substance: FLUTICASONE FUROATE\VILANTEROL TRIFENATATE
  4. ALBUTEROL SULFATE [Concomitant]
     Active Substance: ALBUTEROL SULFATE
  5. LOSARTAN [Concomitant]
     Active Substance: LOSARTAN
  6. ETODOLAC [Concomitant]
     Active Substance: ETODOLAC
  7. COOL PAP JEIL [DICLOFENAC DIETHYLAMINE] [Concomitant]
  8. EPIPEN [Concomitant]
     Active Substance: EPINEPHRINE
  9. XOLAIR [Concomitant]
     Active Substance: OMALIZUMAB
  10. SPIRONOLACTONE [Concomitant]
     Active Substance: SPIRONOLACTONE
  11. OXYGEN [Concomitant]
     Active Substance: OXYGEN
  12. OSTEO BI-FLEX [CHONDROITIN SULFATE;GLUCOSAMINE HYDROCHLORIDE] [Concomitant]
  13. BUDESONIDE [Concomitant]
     Active Substance: BUDESONIDE

REACTIONS (1)
  - Death [Fatal]

NARRATIVE: CASE EVENT DATE: 20231220
